FAERS Safety Report 13594369 (Version 5)
Quarter: 2019Q2

REPORT INFORMATION
  Report Type: Report from Study
  Country: CA (occurrence: CA)
  Receive Date: 20170530
  Receipt Date: 20190604
  Transmission Date: 20190711
  Serious: Yes (Hospitalization, Other)
  Sender: FDA-Public Use
  Company Number: CA-BRISTOL-MYERS SQUIBB COMPANY-BMS-2017-046227

PATIENT
  Age: 67 Year
  Sex: Female

DRUGS (8)
  1. D TABS [Concomitant]
     Active Substance: CHOLECALCIFEROL
     Indication: OSTEOARTHRITIS
     Dosage: 5000 IU, BID
     Route: 048
     Dates: start: 2002, end: 2004
  2. FOSAMAX [Concomitant]
     Active Substance: ALENDRONATE SODIUM
     Indication: OSTEOARTHRITIS
     Dosage: 70 MG, QWK
     Route: 048
     Dates: start: 2002, end: 2004
  3. PANTOLOC                           /01263201/ [Concomitant]
     Active Substance: PANTOPRAZOLE SODIUM
     Indication: EPIGASTRIC DISCOMFORT
     Dosage: 40 MG, QD
     Route: 048
     Dates: start: 2002, end: 2004
  4. CALCITE                            /00751520/ [Concomitant]
     Indication: OSTEOPOROSIS
     Dosage: 500 MG, BID
     Route: 048
     Dates: start: 2002, end: 2004
  5. NEXIUM [Concomitant]
     Active Substance: ESOMEPRAZOLE MAGNESIUM
     Indication: EPIGASTRIC DISCOMFORT
     Dosage: 40 MG, QD
     Route: 048
     Dates: start: 2002, end: 2004
  6. FOLIC ACID. [Concomitant]
     Active Substance: FOLIC ACID
     Indication: PROPHYLAXIS
     Dosage: 5 MG, QD
     Route: 048
     Dates: start: 2002, end: 2004
  7. METHOTREXATE. [Concomitant]
     Active Substance: METHOTREXATE
     Indication: RHEUMATOID ARTHRITIS
     Dosage: 25 MG, QWK
     Route: 058
     Dates: start: 2002
  8. ABATACEPT [Suspect]
     Active Substance: ABATACEPT
     Indication: RHEUMATOID ARTHRITIS
     Dosage: 750 MG, Q4WK
     Route: 042
     Dates: start: 20140303, end: 20170405

REACTIONS (9)
  - Arthralgia [Unknown]
  - Cardiac disorder [Recovering/Resolving]
  - Pain in extremity [Unknown]
  - Musculoskeletal stiffness [Unknown]
  - Coronary arterial stent insertion [Unknown]
  - Pulmonary oedema [Recovered/Resolved]
  - Dyspnoea exertional [Unknown]
  - Influenza [Unknown]
  - Synovitis [Unknown]

NARRATIVE: CASE EVENT DATE: 20170515
